FAERS Safety Report 24762304 (Version 1)
Quarter: 2024Q4

REPORT INFORMATION
  Report Type: Spontaneous
  Country: FR (occurrence: FR)
  Receive Date: 20241221
  Receipt Date: 20241221
  Transmission Date: 20250114
  Serious: Yes (Hospitalization, Other)
  Sender: AUROBINDO
  Company Number: FR-AFSSAPS-PC2024001014

PATIENT
  Age: 59 Year
  Sex: Female
  Weight: 65 kg

DRUGS (2)
  1. ETORICOXIB [Suspect]
     Active Substance: ETORICOXIB
     Indication: Wound infection
     Dosage: 3 DOSAGE FORM
     Route: 048
     Dates: start: 202407, end: 202408
  2. AMOXICILLIN [Suspect]
     Active Substance: AMOXICILLIN
     Indication: Wound infection
     Dosage: 2 GRAM, ONCE A DAY
     Route: 048
     Dates: start: 20240729, end: 20240805

REACTIONS (1)
  - Acute generalised exanthematous pustulosis [Recovered/Resolved]

NARRATIVE: CASE EVENT DATE: 20240809
